FAERS Safety Report 11333536 (Version 1)
Quarter: 2015Q3

REPORT INFORMATION
  Report Type: Spontaneous
  Country: US (occurrence: US)
  Receive Date: 20150803
  Receipt Date: 20150803
  Transmission Date: 20151125
  Serious: No
  Sender: FDA-Public Use
  Company Number: US-ELI_LILLY_AND_COMPANY-US200801004665

PATIENT
  Sex: Female
  Weight: 92.06 kg

DRUGS (2)
  1. ZYPREXA [Suspect]
     Active Substance: OLANZAPINE
     Dosage: UNK, DAILY (1/D)
     Dates: start: 1996
  2. ZYPREXA [Suspect]
     Active Substance: OLANZAPINE
     Dosage: UNK, DAILY (1/D)
     Dates: start: 2004

REACTIONS (2)
  - Obesity [Not Recovered/Not Resolved]
  - Diabetes mellitus [Not Recovered/Not Resolved]
